FAERS Safety Report 9493409 (Version 1)
Quarter: 2013Q3

REPORT INFORMATION
  Report Type: Spontaneous
  Country: CH (occurrence: CH)
  Receive Date: 20130902
  Receipt Date: 20130902
  Transmission Date: 20140515
  Serious: Yes (Other)
  Sender: FDA-Public Use
  Company Number: PHHY2013CH093947

PATIENT
  Age: 17 Year
  Sex: Female

DRUGS (2)
  1. DEFERASIROX [Suspect]
     Indication: THALASSAEMIA BETA
     Dosage: 20 MG/KG
  2. DEFERASIROX [Suspect]
     Dosage: 30 MG/KG

REACTIONS (7)
  - Acidosis hyperchloraemic [Recovered/Resolved]
  - Hypovolaemia [Unknown]
  - Mucous membrane disorder [Unknown]
  - Blood pressure decreased [Unknown]
  - Nausea [Unknown]
  - Vomiting [Unknown]
  - Abdominal pain [Unknown]
